FAERS Safety Report 13568018 (Version 4)
Quarter: 2019Q1

REPORT INFORMATION
  Report Type: Report from Study
  Country: US (occurrence: US)
  Receive Date: 20170522
  Receipt Date: 20190301
  Transmission Date: 20190417
  Serious: Yes (Other)
  Sender: FDA-Public Use
  Company Number: US-ASTRAZENECA-2017SE16892

PATIENT
  Age: 21709 Day
  Sex: Female
  Weight: 81.6 kg

DRUGS (14)
  1. METHYLPHENIDATE. [Concomitant]
     Active Substance: METHYLPHENIDATE
     Dosage: 5.0MG AS REQUIRED
     Route: 048
  2. TAGRISSO [Suspect]
     Active Substance: OSIMERTINIB
     Indication: LUNG CARCINOMA CELL TYPE UNSPECIFIED STAGE I
     Route: 048
     Dates: start: 20160201
  3. PRISTIQ EXTENDED-RELEASE [Concomitant]
     Active Substance: DESVENLAFAXINE SUCCINATE
     Route: 048
  4. LIPITOR [Concomitant]
     Active Substance: ATORVASTATIN CALCIUM
     Route: 048
     Dates: start: 20130815
  5. LEVOTHYROXINE. [Concomitant]
     Active Substance: LEVOTHYROXINE
     Route: 048
     Dates: start: 20130815
  6. PROPRANOLOL [Concomitant]
     Active Substance: PROPRANOLOL HYDROCHLORIDE
     Dosage: 1.0DF UNKNOWN
     Route: 048
     Dates: start: 20160314
  7. TAGRISSO [Suspect]
     Active Substance: OSIMERTINIB
     Indication: LUNG CARCINOMA CELL TYPE UNSPECIFIED STAGE I
     Route: 048
  8. TARCEVA [Concomitant]
     Active Substance: ERLOTINIB HYDROCHLORIDE
     Route: 048
  9. TEMAZEPAM. [Concomitant]
     Active Substance: TEMAZEPAM
     Route: 048
     Dates: start: 20170920
  10. TAGRISSO [Suspect]
     Active Substance: OSIMERTINIB
     Indication: LUNG CARCINOMA CELL TYPE UNSPECIFIED STAGE I
     Dosage: REDUCED TO UNKNOWN DOSE
     Route: 048
  11. LOSARTAN. [Concomitant]
     Active Substance: LOSARTAN
     Route: 048
  12. AZITHROMYCIN ANHYDROUS. [Concomitant]
     Active Substance: AZITHROMYCIN ANHYDROUS
     Route: 048
  13. METHYLPHENIDATE. [Concomitant]
     Active Substance: METHYLPHENIDATE
     Dosage: 5.0MG AS REQUIRED
     Route: 048
  14. AVASTIN [Concomitant]
     Active Substance: BEVACIZUMAB
     Indication: NEOPLASM MALIGNANT
     Dates: start: 20081001

REACTIONS (19)
  - Vomiting [Unknown]
  - Decreased appetite [Not Recovered/Not Resolved]
  - Diarrhoea [Recovered/Resolved]
  - Fatigue [Not Recovered/Not Resolved]
  - Dizziness [Unknown]
  - Asthenia [Unknown]
  - Palpitations [Unknown]
  - Amnesia [Unknown]
  - Depression [Unknown]
  - Cough [Not Recovered/Not Resolved]
  - Nausea [Recovered/Resolved]
  - Tachycardia [Unknown]
  - Vertigo [Unknown]
  - Dyspnoea exertional [Unknown]
  - Proteinuria [Recovered/Resolved]
  - Weight decreased [Unknown]
  - Malaise [Unknown]
  - Visual impairment [Unknown]
  - Dyspepsia [Unknown]

NARRATIVE: CASE EVENT DATE: 20160201
